FAERS Safety Report 20609118 (Version 1)
Quarter: 2022Q1

REPORT INFORMATION
  Report Type: Spontaneous
  Country: US (occurrence: US)
  Receive Date: 20220317
  Receipt Date: 20220317
  Transmission Date: 20220424
  Serious: Yes (Other)
  Sender: FDA-Public Use
  Company Number: US-PFIZER INC-202200364029

PATIENT
  Age: 54 Year
  Sex: Female

DRUGS (1)
  1. IBRANCE [Suspect]
     Active Substance: PALBOCICLIB
     Dosage: 125 MG, DAILY FOR 21 DAYS ON
     Dates: start: 20220114

REACTIONS (3)
  - Spinal compression fracture [Unknown]
  - Fatigue [Not Recovered/Not Resolved]
  - Back disorder [Not Recovered/Not Resolved]
